FAERS Safety Report 10232747 (Version 2)
Quarter: 2014Q2

REPORT INFORMATION
  Report Type: Spontaneous
  Country: FR (occurrence: FR)
  Receive Date: 20140612
  Receipt Date: 20140626
  Transmission Date: 20141212
  Serious: Yes (Hospitalization)
  Sender: FDA-Public Use
  Company Number: FR-PFIZER INC-2014159097

PATIENT
  Age: 84 Year
  Sex: Female

DRUGS (15)
  1. CORDARONE [Suspect]
     Dosage: UNK
     Route: 048
     Dates: start: 20140115, end: 20140507
  2. LASILIX [Suspect]
     Indication: OEDEMA PERIPHERAL
     Dosage: 60 MG, DAILY
     Route: 048
     Dates: start: 20140423, end: 20140507
  3. LASILIX [Suspect]
     Dosage: 40 MG, 3X/DAY
     Route: 048
     Dates: start: 20140507, end: 20140508
  4. XARELTO [Suspect]
     Dosage: UNK
     Route: 065
     Dates: start: 201209, end: 20140507
  5. LEVOTHYROX [Concomitant]
  6. TARDYFERON [Concomitant]
  7. IMOVANE [Concomitant]
  8. BISOPROLOL [Concomitant]
  9. TRIATEC [Concomitant]
  10. SERETIDE [Concomitant]
  11. VENTOLINE [Concomitant]
  12. TEMESTA [Concomitant]
  13. DIFFU K [Concomitant]
  14. DOLIPRANE [Concomitant]
  15. KARDEGIC [Concomitant]

REACTIONS (4)
  - Thrombocytopenia [Recovered/Resolved]
  - Depression [Unknown]
  - Head injury [Unknown]
  - Face injury [Unknown]
